FAERS Safety Report 20795795 (Version 1)
Quarter: 2022Q2

REPORT INFORMATION
  Report Type: Spontaneous
  Country: US (occurrence: None)
  Receive Date: 20220504
  Receipt Date: 20220504
  Transmission Date: 20220721
  Serious: Yes (Life-Threatening, Disabling)
  Sender: FDA-Public Use
  Company Number: None

PATIENT
  Age: 66 Year
  Sex: Female
  Weight: 83.91 kg

DRUGS (8)
  1. ROMOSOZUMAB [Suspect]
     Active Substance: ROMOSOZUMAB
     Indication: Osteoporosis
     Dosage: FREQUENCY : MONTHLY;?
     Dates: start: 20220302, end: 20220406
  2. FLUOXETINE [Concomitant]
     Active Substance: FLUOXETINE HYDROCHLORIDE
  3. BENZONATATE [Concomitant]
     Active Substance: BENZONATATE
  4. DEXMETHYLPH [Concomitant]
  5. VITAMIN B12 [Concomitant]
     Active Substance: CYANOCOBALAMIN
  6. PROBIOTIC [Concomitant]
  7. STOOL SOFTNER [Concomitant]
  8. NAPROXEN SODIUM [Concomitant]

REACTIONS (2)
  - Dyspnoea [None]
  - Arthralgia [None]

NARRATIVE: CASE EVENT DATE: 20220406
